FAERS Safety Report 13661295 (Version 1)
Quarter: 2017Q2

REPORT INFORMATION
  Report Type: Report from Study
  Country: US (occurrence: US)
  Receive Date: 20170616
  Receipt Date: 20170616
  Transmission Date: 20170830
  Serious: No
  Sender: FDA-Public Use
  Company Number: US-US WORLDMEDS, LLC-USW201701-000040

PATIENT
  Sex: Female

DRUGS (21)
  1. METHOTREXATE. [Concomitant]
     Active Substance: METHOTREXATE
  2. STALEVO [Concomitant]
     Active Substance: CARBIDOPA\ENTACAPONE\LEVODOPA
  3. TIGAN [Concomitant]
     Active Substance: TRIMETHOBENZAMIDE HYDROCHLORIDE
  4. RESTASIS [Concomitant]
     Active Substance: CYCLOSPORINE
  5. REMICADE [Concomitant]
     Active Substance: INFLIXIMAB
  6. REQUIP XL [Concomitant]
     Active Substance: ROPINIROLE HYDROCHLORIDE
  7. NEXIUM [Concomitant]
     Active Substance: ESOMEPRAZOLE MAGNESIUM
  8. PREDNISONE. [Concomitant]
     Active Substance: PREDNISONE
  9. POTASSIUM/CHLORIDE [Concomitant]
  10. MOBIC [Concomitant]
     Active Substance: MELOXICAM
  11. LYRICA [Concomitant]
     Active Substance: PREGABALIN
  12. APOKYN [Suspect]
     Active Substance: APOMORPHINE HYDROCHLORIDE
     Indication: PARKINSON^S DISEASE
     Dates: start: 20130916
  13. AMITIZA [Concomitant]
     Active Substance: LUBIPROSTONE
  14. TRAZODONE [Concomitant]
     Active Substance: TRAZODONE HYDROCHLORIDE
  15. CARAFATE [Concomitant]
     Active Substance: SUCRALFATE
  16. FOLIC ACID. [Concomitant]
     Active Substance: FOLIC ACID
  17. SALAGEN [Concomitant]
     Active Substance: PILOCARPINE HYDROCHLORIDE
  18. NORTHERA [Concomitant]
     Active Substance: DROXIDOPA
  19. VOLTAREN [Concomitant]
     Active Substance: DICLOFENAC SODIUM
  20. OXYCODONE/ PERCOCET [Concomitant]
  21. LASIX [Concomitant]
     Active Substance: FUROSEMIDE

REACTIONS (1)
  - Cardiac disorder [Unknown]
